FAERS Safety Report 22031158 (Version 2)
Quarter: 2023Q1

REPORT INFORMATION
  Report Type: Spontaneous
  Country: JP (occurrence: JP)
  Receive Date: 20230223
  Receipt Date: 20230226
  Transmission Date: 20230418
  Serious: Yes (Other)
  Sender: FDA-Public Use
  Company Number: JP-002147023-NVSJ2022JP095704

PATIENT
  Sex: Female

DRUGS (1)
  1. COSENTYX [Suspect]
     Active Substance: SECUKINUMAB
     Indication: Product used for unknown indication
     Dosage: UNK
     Route: 058
     Dates: start: 20220803

REACTIONS (2)
  - Weight fluctuation [Unknown]
  - Mood swings [Unknown]

NARRATIVE: CASE EVENT DATE: 20220804
